FAERS Safety Report 6811526-5 (Version None)
Quarter: 2010Q3

REPORT INFORMATION
  Report Type: 
  Country: None (occurrence: None)
  Receive Date: 20100701
  Receipt Date: 20090721
  Transmission Date: 20110219
  Serious: Yes (Other)
  Sender: FDA-Public Use
  Company Number: US-ASTRAZENECA-2007UW12188

PATIENT
  Age: 64 Year
  Sex: Female
  Weight: 105.2 kg

DRUGS (13)
  1. SEROQUEL [Suspect]
     Indication: DEPRESSION
     Dosage: 25 - 400 MG
     Route: 048
     Dates: start: 20020201
  2. SEROQUEL [Suspect]
     Indication: NERVOUSNESS
     Dosage: 25 - 400 MG
     Route: 048
     Dates: start: 20020201
  3. SEROQUEL [Suspect]
     Indication: SLEEP DISORDER
     Dosage: 25 - 400 MG
     Route: 048
     Dates: start: 20020201
  4. SEROQUEL [Suspect]
     Route: 048
     Dates: start: 20020205
  5. SEROQUEL [Suspect]
     Route: 048
     Dates: start: 20020205
  6. SEROQUEL [Suspect]
     Route: 048
     Dates: start: 20020205
  7. AMBIEN [Concomitant]
     Indication: SLEEP DISORDER
     Dosage: 10 MG AT NIGHT, AS REQUIRED
     Dates: start: 20040122
  8. PAXIL [Concomitant]
     Dosage: 20 - 40 MG, IN THE MORNING
     Dates: start: 20011210
  9. CELEBREX [Concomitant]
     Indication: PAIN
     Dates: start: 20040122
  10. ZOCOR [Concomitant]
     Route: 048
     Dates: start: 20040517
  11. PROTONIX [Concomitant]
     Dates: start: 20040517
  12. DIOVAN [Concomitant]
     Dates: start: 20011210
  13. HALDOL [Concomitant]

REACTIONS (7)
  - BLOOD CHOLESTEROL INCREASED [None]
  - DIABETIC NEUROPATHY [None]
  - GLUCOSE TOLERANCE IMPAIRED [None]
  - HYPERLIPIDAEMIA [None]
  - MUSCULOSKELETAL DISCOMFORT [None]
  - OBESITY [None]
  - TYPE 2 DIABETES MELLITUS [None]
